FAERS Safety Report 13114444 (Version 24)
Quarter: 2021Q1

REPORT INFORMATION
  Report Type: Spontaneous
  Country: CA (occurrence: CA)
  Receive Date: 20170113
  Receipt Date: 20210312
  Transmission Date: 20210419
  Serious: Yes (Hospitalization, Disabling, Other)
  Sender: FDA-Public Use
  Company Number: CA-JNJFOC-20170105843

PATIENT
  Age: 53 Year
  Sex: Female
  Weight: 90 kg

DRUGS (280)
  1. REMICADE [Suspect]
     Active Substance: INFLIXIMAB
     Indication: RHEUMATOID ARTHRITIS
     Route: 042
     Dates: start: 2011, end: 2012
  2. SIMPONI [Suspect]
     Active Substance: GOLIMUMAB
     Indication: RHEUMATOID ARTHRITIS
     Route: 058
  3. ENBREL [Suspect]
     Active Substance: ETANERCEPT
     Route: 065
  4. METHOTREXATE SODIUM. [Suspect]
     Active Substance: METHOTREXATE SODIUM
     Dosage: START DATE: 5TH OF UNSPECIFIED MONTH
     Route: 058
     Dates: start: 2011
  5. METHOTREXATE SODIUM. [Suspect]
     Active Substance: METHOTREXATE SODIUM
     Dosage: START DATE: 1ST OF UNSPECIFIED MONTH
     Route: 058
     Dates: start: 2015
  6. ACTEMRA [Suspect]
     Active Substance: TOCILIZUMAB
     Route: 065
  7. ACTEMRA [Suspect]
     Active Substance: TOCILIZUMAB
     Route: 065
  8. HUMIRA [Suspect]
     Active Substance: ADALIMUMAB
     Route: 058
  9. HYDROXYCHLOROQUINE SULFATE. [Suspect]
     Active Substance: HYDROXYCHLOROQUINE SULFATE
     Route: 065
  10. HYDROXYCHLOROQUINE SULFATE. [Suspect]
     Active Substance: HYDROXYCHLOROQUINE SULFATE
     Route: 065
  11. METHOTREXATE. [Suspect]
     Active Substance: METHOTREXATE
     Route: 048
  12. METHOTREXATE. [Suspect]
     Active Substance: METHOTREXATE
     Route: 065
  13. METHOTREXATE. [Suspect]
     Active Substance: METHOTREXATE
     Route: 058
  14. METHOTREXATE. [Suspect]
     Active Substance: METHOTREXATE
     Route: 058
  15. METHOTREXATE. [Suspect]
     Active Substance: METHOTREXATE
     Route: 065
  16. RITUXAN [Suspect]
     Active Substance: RITUXIMAB
     Route: 042
  17. RITUXAN [Suspect]
     Active Substance: RITUXIMAB
     Route: 065
  18. METHOTREXATE. [Suspect]
     Active Substance: METHOTREXATE
     Route: 065
  19. MYOCHRYSINE [Suspect]
     Active Substance: GOLD SODIUM THIOMALATE
     Route: 030
  20. ORENCIA [Suspect]
     Active Substance: ABATACEPT
     Route: 042
  21. HYDROXYCHLOROQUINE [Suspect]
     Active Substance: HYDROXYCHLOROQUINE
     Route: 065
  22. RITUXIMAB. [Suspect]
     Active Substance: RITUXIMAB
     Indication: RHEUMATOID ARTHRITIS
     Route: 065
  23. ARAVA [Suspect]
     Active Substance: LEFLUNOMIDE
     Route: 065
  24. PANTOPRAZOLE [Suspect]
     Active Substance: PANTOPRAZOLE
     Indication: PRODUCT USED FOR UNKNOWN INDICATION
     Route: 065
  25. PREGABALIN. [Suspect]
     Active Substance: PREGABALIN
     Indication: PRODUCT USED FOR UNKNOWN INDICATION
     Route: 065
  26. LEFLUNOMIDE. [Suspect]
     Active Substance: LEFLUNOMIDE
     Indication: RHEUMATOID ARTHRITIS
     Route: 048
  27. ETANERCEPT [Suspect]
     Active Substance: ETANERCEPT
     Route: 065
  28. ETANERCEPT [Suspect]
     Active Substance: ETANERCEPT
     Route: 065
  29. CICLOSPORIN [Concomitant]
     Active Substance: CYCLOSPORINE
     Route: 065
  30. GRAVOL [Concomitant]
     Active Substance: DIMENHYDRINATE
     Route: 065
  31. FOSAMAX [Concomitant]
     Active Substance: ALENDRONATE SODIUM
     Route: 065
  32. IBUPROFEN. [Suspect]
     Active Substance: IBUPROFEN
     Route: 048
  33. ENBREL [Suspect]
     Active Substance: ETANERCEPT
     Route: 065
  34. METHOTREXATE SODIUM. [Suspect]
     Active Substance: METHOTREXATE SODIUM
     Route: 058
  35. METHOTREXATE SODIUM. [Suspect]
     Active Substance: METHOTREXATE SODIUM
     Route: 058
  36. TOCILIZUMAB. [Suspect]
     Active Substance: TOCILIZUMAB
     Route: 065
  37. ACTEMRA [Suspect]
     Active Substance: TOCILIZUMAB
     Route: 065
  38. ALENDRONATE [Suspect]
     Active Substance: ALENDRONATE SODIUM
     Route: 065
  39. HUMIRA [Suspect]
     Active Substance: ADALIMUMAB
     Indication: RHEUMATOID ARTHRITIS
     Route: 058
  40. LEFLUNOMIDE. [Suspect]
     Active Substance: LEFLUNOMIDE
     Route: 048
  41. LEFLUNOMIDE. [Suspect]
     Active Substance: LEFLUNOMIDE
     Route: 065
  42. METHOTREXATE. [Suspect]
     Active Substance: METHOTREXATE
     Route: 065
  43. METHOTREXATE. [Suspect]
     Active Substance: METHOTREXATE
     Route: 065
  44. METHOTREXATE. [Suspect]
     Active Substance: METHOTREXATE
     Route: 065
  45. METHOTREXATE. [Suspect]
     Active Substance: METHOTREXATE
     Route: 058
  46. METHOTREXATE. [Suspect]
     Active Substance: METHOTREXATE
     Route: 065
  47. RITUXAN [Suspect]
     Active Substance: RITUXIMAB
     Indication: RHEUMATOID ARTHRITIS
     Route: 042
  48. SULFASALAZINE. [Suspect]
     Active Substance: SULFASALAZINE
     Route: 065
  49. SULFASALAZINE. [Suspect]
     Active Substance: SULFASALAZINE
     Route: 065
  50. FOSAMAX [Suspect]
     Active Substance: ALENDRONATE SODIUM
     Route: 065
  51. METHOTREXATE. [Suspect]
     Active Substance: METHOTREXATE
     Dosage: START DATE: 5TH OF UNSPECIFIED MONTH
     Route: 065
  52. METHOTREXATE. [Suspect]
     Active Substance: METHOTREXATE
     Route: 065
  53. METHOTREXATE. [Suspect]
     Active Substance: METHOTREXATE
     Route: 065
  54. ORENCIA [Suspect]
     Active Substance: ABATACEPT
     Route: 065
  55. ORENCIA [Suspect]
     Active Substance: ABATACEPT
     Route: 042
  56. HYDROXYCHLOROQUINE [Suspect]
     Active Substance: HYDROXYCHLOROQUINE
     Route: 048
  57. RITUXIMAB. [Suspect]
     Active Substance: RITUXIMAB
     Route: 042
  58. ACTEMRA [Suspect]
     Active Substance: TOCILIZUMAB
     Route: 042
  59. ARAVA [Suspect]
     Active Substance: LEFLUNOMIDE
     Indication: RHEUMATOID ARTHRITIS
     Route: 048
  60. AZATHIOPRINE. [Suspect]
     Active Substance: AZATHIOPRINE
     Indication: RHEUMATOID ARTHRITIS
     Route: 065
  61. CERTOLIZUMAB PEGOL [Suspect]
     Active Substance: CERTOLIZUMAB PEGOL
     Route: 065
  62. SULFASALAZINE. [Suspect]
     Active Substance: SULFASALAZINE
     Indication: RHEUMATOID ARTHRITIS
     Route: 065
  63. HYDROXYCHLOROQUINE SULFATE. [Suspect]
     Active Substance: HYDROXYCHLOROQUINE SULFATE
     Route: 048
  64. ALENDRONATE SODIUM. [Suspect]
     Active Substance: ALENDRONATE SODIUM
     Indication: PRODUCT USED FOR UNKNOWN INDICATION
     Route: 065
  65. PREDNISONE. [Suspect]
     Active Substance: PREDNISONE
     Indication: RHEUMATOID ARTHRITIS
     Route: 065
  66. PREDNISONE. [Concomitant]
     Active Substance: PREDNISONE
     Route: 065
  67. XELJANZ [Concomitant]
     Active Substance: TOFACITINIB CITRATE
     Route: 065
  68. LEFLUNOMIDE. [Concomitant]
     Active Substance: LEFLUNOMIDE
  69. STELARA [Suspect]
     Active Substance: USTEKINUMAB
     Indication: PSORIATIC ARTHROPATHY
     Route: 058
  70. IBUPROFEN. [Suspect]
     Active Substance: IBUPROFEN
     Route: 048
  71. BENADRYL [Suspect]
     Active Substance: DIPHENHYDRAMINE HYDROCHLORIDE
     Indication: PRODUCT USED FOR UNKNOWN INDICATION
     Route: 065
  72. ENBREL [Suspect]
     Active Substance: ETANERCEPT
     Route: 065
  73. METHOTREXATE SODIUM. [Suspect]
     Active Substance: METHOTREXATE SODIUM
     Route: 058
  74. ACTEMRA [Suspect]
     Active Substance: TOCILIZUMAB
     Route: 042
  75. HUMIRA [Suspect]
     Active Substance: ADALIMUMAB
     Route: 058
  76. METHOTREXATE. [Suspect]
     Active Substance: METHOTREXATE
     Route: 048
  77. METHOTREXATE. [Suspect]
     Active Substance: METHOTREXATE
     Route: 065
  78. METHOTREXATE. [Suspect]
     Active Substance: METHOTREXATE
     Route: 048
  79. RITUXAN [Suspect]
     Active Substance: RITUXIMAB
     Route: 041
  80. FOSAMAX [Suspect]
     Active Substance: ALENDRONATE SODIUM
     Indication: PRODUCT USED FOR UNKNOWN INDICATION
     Route: 065
  81. METHOTREXATE. [Suspect]
     Active Substance: METHOTREXATE
     Dosage: START DATE: 5TH OF UNSPECIFIED MONTH
     Route: 065
  82. METHOTREXATE. [Suspect]
     Active Substance: METHOTREXATE
     Route: 065
  83. MYOCHRYSINE [Suspect]
     Active Substance: GOLD SODIUM THIOMALATE
     Indication: RHEUMATOID ARTHRITIS
     Route: 051
  84. ORENCIA [Suspect]
     Active Substance: ABATACEPT
     Route: 065
  85. APO?LEFLUNOMIDE [Suspect]
     Active Substance: LEFLUNOMIDE
     Route: 048
  86. APO?LEFLUNOMIDE [Suspect]
     Active Substance: LEFLUNOMIDE
     Route: 048
  87. APO?LEFLUNOMIDE [Suspect]
     Active Substance: LEFLUNOMIDE
     Route: 065
  88. HYDROXYCHLOROQUINE [Suspect]
     Active Substance: HYDROXYCHLOROQUINE
     Indication: RHEUMATOID ARTHRITIS
     Route: 048
  89. ALENDRONIC ACID [Suspect]
     Active Substance: ALENDRONIC ACID
     Route: 065
  90. APO IBUPROFEN [Suspect]
     Active Substance: IBUPROFEN
     Indication: RHEUMATOID ARTHRITIS
     Route: 048
  91. GOLD [Suspect]
     Active Substance: GOLD
     Indication: RHEUMATOID ARTHRITIS
     Route: 065
  92. LYRICA [Suspect]
     Active Substance: PREGABALIN
     Indication: PRODUCT USED FOR UNKNOWN INDICATION
     Route: 065
  93. CICLOSPORIN [Suspect]
     Active Substance: CYCLOSPORINE
     Indication: RHEUMATOID ARTHRITIS
     Route: 065
  94. ZOSTAVAX [Suspect]
     Active Substance: VARICELLA-ZOSTER VIRUS STRAIN OKA/MERCK LIVE ANTIGEN
     Indication: PRODUCT USED FOR UNKNOWN INDICATION
     Route: 058
  95. PREDNISOLONE. [Concomitant]
     Active Substance: PREDNISOLONE
  96. ULORIC [Concomitant]
     Active Substance: FEBUXOSTAT
     Route: 065
  97. REMICADE [Suspect]
     Active Substance: INFLIXIMAB
     Indication: CROHN^S DISEASE
     Route: 042
  98. ENBREL [Suspect]
     Active Substance: ETANERCEPT
     Route: 058
  99. ENBREL [Suspect]
     Active Substance: ETANERCEPT
     Route: 058
  100. METHOTREXATE SODIUM. [Suspect]
     Active Substance: METHOTREXATE SODIUM
     Indication: RHEUMATOID ARTHRITIS
     Route: 058
     Dates: start: 1989
  101. METHOTREXATE SODIUM. [Suspect]
     Active Substance: METHOTREXATE SODIUM
     Route: 058
     Dates: start: 200806
  102. METHOTREXATE SODIUM. [Suspect]
     Active Substance: METHOTREXATE SODIUM
     Route: 058
     Dates: start: 200908
  103. METHOTREXATE SODIUM. [Suspect]
     Active Substance: METHOTREXATE SODIUM
     Route: 058
  104. TOCILIZUMAB. [Suspect]
     Active Substance: TOCILIZUMAB
     Route: 065
  105. TOCILIZUMAB. [Suspect]
     Active Substance: TOCILIZUMAB
     Route: 065
  106. ALENDRONATE [Suspect]
     Active Substance: ALENDRONATE SODIUM
     Indication: RHEUMATOID ARTHRITIS
     Route: 065
  107. ALENDRONATE [Suspect]
     Active Substance: ALENDRONATE SODIUM
     Route: 065
  108. HYDROXYCHLOROQUINE SULFATE. [Suspect]
     Active Substance: HYDROXYCHLOROQUINE SULFATE
     Route: 048
  109. LEFLUNOMIDE. [Suspect]
     Active Substance: LEFLUNOMIDE
     Indication: RHEUMATOID ARTHRITIS
     Dosage: 4 YEARS
     Route: 048
  110. METHOTREXATE. [Suspect]
     Active Substance: METHOTREXATE
     Route: 058
  111. RITUXAN [Suspect]
     Active Substance: RITUXIMAB
     Route: 042
  112. RITUXAN [Suspect]
     Active Substance: RITUXIMAB
     Route: 041
  113. SULFASALAZINE. [Suspect]
     Active Substance: SULFASALAZINE
     Route: 005
  114. FOSAMAX [Suspect]
     Active Substance: ALENDRONATE SODIUM
     Route: 065
  115. METHOTREXATE. [Suspect]
     Active Substance: METHOTREXATE
     Route: 065
  116. METHOTREXATE. [Suspect]
     Active Substance: METHOTREXATE
     Dosage: START DATE: 1ST OF UNSPECIFIED MONTH
     Route: 065
  117. MYOCHRYSINE [Suspect]
     Active Substance: GOLD SODIUM THIOMALATE
     Indication: RASH
     Route: 051
  118. ACTEMRA [Suspect]
     Active Substance: TOCILIZUMAB
     Indication: RHEUMATOID ARTHRITIS
     Route: 042
  119. ACTEMRA [Suspect]
     Active Substance: TOCILIZUMAB
     Route: 042
  120. ACTEMRA [Suspect]
     Active Substance: TOCILIZUMAB
     Route: 042
  121. ALENDRONIC ACID [Suspect]
     Active Substance: ALENDRONIC ACID
     Indication: PRODUCT USED FOR UNKNOWN INDICATION
     Route: 065
  122. HUMIRA [Suspect]
     Active Substance: ADALIMUMAB
     Indication: RHEUMATOID ARTHRITIS
     Route: 058
  123. COSENTYX [Suspect]
     Active Substance: SECUKINUMAB
     Indication: PSORIATIC ARTHROPATHY
     Route: 058
  124. CIMZIA [Suspect]
     Active Substance: CERTOLIZUMAB PEGOL
     Route: 058
  125. OTEZLA [Suspect]
     Active Substance: APREMILAST
     Indication: PSORIATIC ARTHROPATHY
     Route: 065
  126. OTEZLA [Suspect]
     Active Substance: APREMILAST
     Route: 065
  127. CICLOSPORIN [Suspect]
     Active Substance: CYCLOSPORINE
     Route: 065
  128. CICLOSPORIN [Suspect]
     Active Substance: CYCLOSPORINE
     Route: 048
  129. ORENCIA [Suspect]
     Active Substance: ABATACEPT
     Route: 065
  130. AZATHIOPRINE. [Suspect]
     Active Substance: AZATHIOPRINE
     Indication: RHEUMATOID ARTHRITIS
     Route: 042
  131. HYDROXYCHLOROQUINE [Suspect]
     Active Substance: HYDROXYCHLOROQUINE
     Indication: RHEUMATOID ARTHRITIS
     Route: 058
  132. HYDROXYCHLOROQUINE SULFATE. [Suspect]
     Active Substance: HYDROXYCHLOROQUINE SULFATE
     Indication: RHEUMATOID ARTHRITIS
     Route: 048
  133. ADALIMUMAB [Suspect]
     Active Substance: ADALIMUMAB
     Indication: RHEUMATOID ARTHRITIS
     Route: 058
  134. ADALIMUMAB [Suspect]
     Active Substance: ADALIMUMAB
     Route: 058
  135. RITUXIMAB. [Suspect]
     Active Substance: RITUXIMAB
     Indication: RHEUMATOID ARTHRITIS
     Route: 041
  136. ALENDRONIC ACID [Suspect]
     Active Substance: ALENDRONIC ACID
     Indication: PRODUCT USED FOR UNKNOWN INDICATION
     Route: 065
  137. PREDNISONE. [Suspect]
     Active Substance: PREDNISONE
     Route: 065
  138. SULFASALAZINE. [Suspect]
     Active Substance: SULFASALAZINE
     Indication: RHEUMATOID ARTHRITIS
     Route: 005
  139. CICLOSPORIN [Concomitant]
     Active Substance: CYCLOSPORINE
     Indication: PRODUCT USED FOR UNKNOWN INDICATION
     Route: 065
     Dates: end: 20160420
  140. PREDNISONE. [Concomitant]
     Active Substance: PREDNISONE
     Indication: RHEUMATOID ARTHRITIS
     Route: 065
     Dates: start: 201303
  141. PREDNISONE. [Concomitant]
     Active Substance: PREDNISONE
     Route: 048
  142. FEBUXOSTAT. [Concomitant]
     Active Substance: FEBUXOSTAT
     Route: 065
  143. FOLIC ACID. [Concomitant]
     Active Substance: FOLIC ACID
     Route: 065
  144. NITRAZEPAM [Concomitant]
     Active Substance: NITRAZEPAM
     Route: 065
  145. VANCOMYCIN [Concomitant]
     Active Substance: VANCOMYCIN
     Indication: CLOSTRIDIUM DIFFICILE INFECTION
  146. MOTRIN [Suspect]
     Active Substance: IBUPROFEN
     Indication: PRODUCT USED FOR UNKNOWN INDICATION
     Route: 065
  147. MOTRIN [Suspect]
     Active Substance: IBUPROFEN
     Route: 065
  148. METHOTREXATE SODIUM. [Suspect]
     Active Substance: METHOTREXATE SODIUM
     Route: 058
  149. METHOTREXATE SODIUM. [Suspect]
     Active Substance: METHOTREXATE SODIUM
     Route: 058
  150. METHOTREXATE SODIUM. [Suspect]
     Active Substance: METHOTREXATE SODIUM
     Route: 058
  151. ACTEMRA [Suspect]
     Active Substance: TOCILIZUMAB
     Route: 065
  152. HYDROXYCHLOROQUINE SULFATE. [Suspect]
     Active Substance: HYDROXYCHLOROQUINE SULFATE
     Indication: RHEUMATOID ARTHRITIS
     Route: 048
  153. METHOTREXATE. [Suspect]
     Active Substance: METHOTREXATE
     Route: 065
  154. FOSAMAX [Suspect]
     Active Substance: ALENDRONATE SODIUM
     Route: 065
  155. FOSAMAX [Suspect]
     Active Substance: ALENDRONATE SODIUM
     Route: 065
  156. METHOTREXATE. [Suspect]
     Active Substance: METHOTREXATE
     Route: 065
  157. MYOCHRYSINE [Suspect]
     Active Substance: GOLD SODIUM THIOMALATE
     Route: 051
  158. MYOCHRYSINE [Suspect]
     Active Substance: GOLD SODIUM THIOMALATE
     Route: 030
  159. APO?LEFLUNOMIDE [Suspect]
     Active Substance: LEFLUNOMIDE
     Indication: RHEUMATOID ARTHRITIS
     Route: 048
  160. RITUXIMAB. [Suspect]
     Active Substance: RITUXIMAB
     Route: 042
  161. ACTEMRA [Suspect]
     Active Substance: TOCILIZUMAB
     Route: 042
  162. CIMZIA [Suspect]
     Active Substance: CERTOLIZUMAB PEGOL
     Indication: RHEUMATOID ARTHRITIS
     Route: 058
  163. OTEZLA [Suspect]
     Active Substance: APREMILAST
     Route: 065
  164. MYCOPHENOLATE MOFETIL. [Suspect]
     Active Substance: MYCOPHENOLATE MOFETIL
     Indication: RHEUMATOID ARTHRITIS
     Route: 065
  165. SODIUM AUROTHIOMALATE [Suspect]
     Active Substance: GOLD SODIUM THIOMALATE
     Indication: RHEUMATOID ARTHRITIS
     Route: 065
  166. LEFLUNOMIDE. [Suspect]
     Active Substance: LEFLUNOMIDE
     Route: 065
  167. CYCLOSPORINE. [Suspect]
     Active Substance: CYCLOSPORINE
     Indication: PRODUCT USED FOR UNKNOWN INDICATION
     Route: 065
  168. RITUXIMAB. [Suspect]
     Active Substance: RITUXIMAB
     Route: 041
  169. NAPROXEN. [Suspect]
     Active Substance: NAPROXEN
     Indication: PRODUCT USED FOR UNKNOWN INDICATION
     Route: 065
  170. SULFASALAZINE. [Suspect]
     Active Substance: SULFASALAZINE
     Indication: RHEUMATOID ARTHRITIS
     Route: 058
  171. XELJANZ [Concomitant]
     Active Substance: TOFACITINIB CITRATE
     Indication: PRODUCT USED FOR UNKNOWN INDICATION
     Route: 048
  172. DESOXIMETASONE. [Concomitant]
     Active Substance: DESOXIMETASONE
  173. PIROXICAM. [Concomitant]
     Active Substance: PIROXICAM
     Indication: PRODUCT USED FOR UNKNOWN INDICATION
     Route: 065
  174. CYCLOSPORINE. [Concomitant]
     Active Substance: CYCLOSPORINE
     Route: 065
  175. XELJANZ [Concomitant]
     Active Substance: TOFACITINIB CITRATE
  176. ULORIC [Concomitant]
     Active Substance: FEBUXOSTAT
  177. IBUPROFEN. [Suspect]
     Active Substance: IBUPROFEN
     Indication: PRODUCT USED FOR UNKNOWN INDICATION
     Route: 065
  178. ENBREL [Suspect]
     Active Substance: ETANERCEPT
     Indication: RHEUMATOID ARTHRITIS
     Route: 065
     Dates: start: 200806, end: 2011
  179. ENBREL [Suspect]
     Active Substance: ETANERCEPT
     Route: 058
  180. METHOTREXATE SODIUM. [Suspect]
     Active Substance: METHOTREXATE SODIUM
     Route: 058
  181. TOCILIZUMAB. [Suspect]
     Active Substance: TOCILIZUMAB
     Dosage: START DATE: ON 10TH OF UNSPECIFIED MONTH IN 2011.
     Route: 065
     Dates: start: 2011
  182. TOCILIZUMAB. [Suspect]
     Active Substance: TOCILIZUMAB
     Route: 065
  183. ACTEMRA [Suspect]
     Active Substance: TOCILIZUMAB
     Indication: RHEUMATOID ARTHRITIS
     Route: 065
  184. ACTEMRA [Suspect]
     Active Substance: TOCILIZUMAB
     Route: 065
  185. ACTEMRA [Suspect]
     Active Substance: TOCILIZUMAB
     Route: 042
  186. ALENDRONATE [Suspect]
     Active Substance: ALENDRONATE SODIUM
     Route: 065
  187. HUMIRA [Suspect]
     Active Substance: ADALIMUMAB
     Route: 058
  188. HUMIRA [Suspect]
     Active Substance: ADALIMUMAB
     Route: 065
  189. METHOTREXATE. [Suspect]
     Active Substance: METHOTREXATE
     Route: 048
  190. METHOTREXATE. [Suspect]
     Active Substance: METHOTREXATE
     Route: 058
  191. METHOTREXATE. [Suspect]
     Active Substance: METHOTREXATE
     Route: 058
  192. METHOTREXATE. [Suspect]
     Active Substance: METHOTREXATE
     Route: 058
  193. METHOTREXATE. [Suspect]
     Active Substance: METHOTREXATE
     Route: 065
  194. SULFASALAZINE. [Suspect]
     Active Substance: SULFASALAZINE
     Indication: RHEUMATOID ARTHRITIS
     Route: 042
  195. SULFASALAZINE. [Suspect]
     Active Substance: SULFASALAZINE
     Route: 065
  196. CODEINE [Suspect]
     Active Substance: CODEINE
     Indication: PRODUCT USED FOR UNKNOWN INDICATION
     Route: 065
  197. METHOTREXATE. [Suspect]
     Active Substance: METHOTREXATE
     Route: 065
  198. METHOTREXATE. [Suspect]
     Active Substance: METHOTREXATE
     Route: 042
  199. ORENCIA [Suspect]
     Active Substance: ABATACEPT
     Indication: RHEUMATOID ARTHRITIS
     Dosage: START DATE: 1ST OF UNSPECIFIED MONTH
     Route: 065
  200. ORENCIA [Suspect]
     Active Substance: ABATACEPT
     Route: 042
  201. ARAVA [Suspect]
     Active Substance: LEFLUNOMIDE
     Route: 048
  202. CIMZIA [Suspect]
     Active Substance: CERTOLIZUMAB PEGOL
     Route: 065
  203. ORENCIA [Suspect]
     Active Substance: ABATACEPT
     Indication: RHEUMATOID ARTHRITIS
     Route: 042
  204. CERTOLIZUMAB PEGOL [Suspect]
     Active Substance: CERTOLIZUMAB PEGOL
     Indication: PRODUCT USED FOR UNKNOWN INDICATION
     Route: 067
  205. HYDROXYCHLOROQUINE SULFATE. [Suspect]
     Active Substance: HYDROXYCHLOROQUINE SULFATE
     Indication: RHEUMATOID ARTHRITIS
     Route: 005
  206. CODEINE SULFATE. [Suspect]
     Active Substance: CODEINE SULFATE
     Indication: PRODUCT USED FOR UNKNOWN INDICATION
     Route: 065
  207. CYCLOSPORINE. [Suspect]
     Active Substance: CYCLOSPORINE
     Route: 065
  208. SYMBICORT [Concomitant]
     Active Substance: BUDESONIDE\FORMOTEROL FUMARATE DIHYDRATE
  209. DEXILANT [Concomitant]
     Active Substance: DEXLANSOPRAZOLE
     Dosage: DELAYED RELEASE
  210. ADVAIR HFA [Concomitant]
     Active Substance: FLUTICASONE PROPIONATE\SALMETEROL XINAFOATE
  211. SIMPONI [Suspect]
     Active Substance: GOLIMUMAB
     Route: 058
  212. ENBREL [Suspect]
     Active Substance: ETANERCEPT
     Indication: PSORIATIC ARTHROPATHY
     Route: 065
  213. ENBREL [Suspect]
     Active Substance: ETANERCEPT
     Route: 065
  214. METHOTREXATE SODIUM. [Suspect]
     Active Substance: METHOTREXATE SODIUM
     Route: 058
     Dates: start: 201202
  215. METHOTREXATE SODIUM. [Suspect]
     Active Substance: METHOTREXATE SODIUM
     Dosage: START DATE: 8TH OF UNSPECIFIED MONTH
     Route: 058
     Dates: start: 2015
  216. METHOTREXATE SODIUM. [Suspect]
     Active Substance: METHOTREXATE SODIUM
     Route: 058
  217. TOCILIZUMAB. [Suspect]
     Active Substance: TOCILIZUMAB
     Indication: RHEUMATOID ARTHRITIS
     Route: 065
     Dates: start: 201101
  218. ACTEMRA [Suspect]
     Active Substance: TOCILIZUMAB
     Route: 065
  219. HYDROXYCHLOROQUINE SULFATE. [Suspect]
     Active Substance: HYDROXYCHLOROQUINE SULFATE
     Route: 048
  220. HYDROXYCHLOROQUINE SULFATE. [Suspect]
     Active Substance: HYDROXYCHLOROQUINE SULFATE
     Route: 065
  221. METHOTREXATE. [Suspect]
     Active Substance: METHOTREXATE
     Indication: RHEUMATOID ARTHRITIS
     Route: 048
  222. METHOTREXATE. [Suspect]
     Active Substance: METHOTREXATE
     Route: 048
  223. METHOTREXATE. [Suspect]
     Active Substance: METHOTREXATE
     Route: 058
  224. METHOTREXATE. [Suspect]
     Active Substance: METHOTREXATE
     Route: 058
  225. METHOTREXATE. [Suspect]
     Active Substance: METHOTREXATE
     Route: 065
  226. METHOTREXATE. [Suspect]
     Active Substance: METHOTREXATE
     Indication: RHEUMATOID ARTHRITIS
     Dosage: START DATE: 1ST OF UNSPECIFIED MONTH
     Route: 065
  227. MYOCHRYSINE [Suspect]
     Active Substance: GOLD SODIUM THIOMALATE
     Route: 051
  228. MYOCHRYSINE [Suspect]
     Active Substance: GOLD SODIUM THIOMALATE
     Route: 030
  229. HUMIRA [Suspect]
     Active Substance: ADALIMUMAB
     Route: 058
  230. COSENTYX [Suspect]
     Active Substance: SECUKINUMAB
     Route: 058
  231. COSENTYX [Suspect]
     Active Substance: SECUKINUMAB
     Route: 058
  232. ERGOCALCIFEROL. [Suspect]
     Active Substance: ERGOCALCIFEROL
     Indication: PRODUCT USED FOR UNKNOWN INDICATION
     Route: 065
  233. CIMZIA [Suspect]
     Active Substance: CERTOLIZUMAB PEGOL
     Route: 058
  234. CERTOLIZUMAB PEGOL [Suspect]
     Active Substance: CERTOLIZUMAB PEGOL
     Indication: RHEUMATOID ARTHRITIS
     Route: 058
  235. INFLIXIMAB [Suspect]
     Active Substance: INFLIXIMAB
     Indication: RHEUMATOID ARTHRITIS
     Route: 042
  236. INFLIXIMAB [Suspect]
     Active Substance: INFLIXIMAB
     Indication: COLITIS ULCERATIVE
     Route: 042
  237. AZATHIOPRINE. [Suspect]
     Active Substance: AZATHIOPRINE
     Indication: RHEUMATOID ARTHRITIS
     Route: 065
  238. ETANERCEPT [Suspect]
     Active Substance: ETANERCEPT
     Indication: RHEUMATOID ARTHRITIS
     Route: 065
  239. CELEBREX [Suspect]
     Active Substance: CELECOXIB
     Indication: PRODUCT USED FOR UNKNOWN INDICATION
     Route: 065
  240. RITUXIMAB. [Suspect]
     Active Substance: RITUXIMAB
     Route: 065
  241. PLAQUENIL [Suspect]
     Active Substance: HYDROXYCHLOROQUINE SULFATE
     Indication: RHEUMATOID ARTHRITIS
     Route: 065
  242. VEDOLIZUMAB [Suspect]
     Active Substance: VEDOLIZUMAB
     Indication: CROHN^S DISEASE
     Route: 042
  243. SULFASALAZINE. [Concomitant]
     Active Substance: SULFASALAZINE
  244. FOLIC ACID. [Concomitant]
     Active Substance: FOLIC ACID
     Route: 065
  245. ACTEMRA [Concomitant]
     Active Substance: TOCILIZUMAB
  246. ENBREL [Suspect]
     Active Substance: ETANERCEPT
     Indication: PSORIASIS
     Route: 065
  247. ENBREL [Suspect]
     Active Substance: ETANERCEPT
     Route: 065
  248. TOCILIZUMAB. [Suspect]
     Active Substance: TOCILIZUMAB
     Route: 065
  249. ACTEMRA [Suspect]
     Active Substance: TOCILIZUMAB
     Route: 065
  250. ACTEMRA [Suspect]
     Active Substance: TOCILIZUMAB
     Route: 065
  251. ACTEMRA [Suspect]
     Active Substance: TOCILIZUMAB
     Route: 065
  252. HUMIRA [Suspect]
     Active Substance: ADALIMUMAB
     Route: 058
  253. HYDROXYCHLOROQUINE SULFATE. [Suspect]
     Active Substance: HYDROXYCHLOROQUINE SULFATE
     Route: 048
  254. METHOTREXATE. [Suspect]
     Active Substance: METHOTREXATE
     Route: 058
  255. METHOTREXATE. [Suspect]
     Active Substance: METHOTREXATE
     Route: 058
  256. METHOTREXATE. [Suspect]
     Active Substance: METHOTREXATE
     Route: 065
  257. FOSAMAX [Suspect]
     Active Substance: ALENDRONATE SODIUM
     Indication: RHEUMATOID ARTHRITIS
     Route: 065
  258. METHOTREXATE. [Suspect]
     Active Substance: METHOTREXATE
     Route: 065
  259. METHOTREXATE. [Suspect]
     Active Substance: METHOTREXATE
     Route: 065
  260. METHOTREXATE. [Suspect]
     Active Substance: METHOTREXATE
     Route: 048
  261. MYOCHRYSINE [Suspect]
     Active Substance: GOLD SODIUM THIOMALATE
     Route: 030
  262. ORENCIA [Suspect]
     Active Substance: ABATACEPT
     Route: 065
  263. ACTEMRA [Suspect]
     Active Substance: TOCILIZUMAB
     Route: 065
  264. COSENTYX [Suspect]
     Active Substance: SECUKINUMAB
     Indication: ANKYLOSING SPONDYLITIS
     Route: 058
  265. COSENTYX [Suspect]
     Active Substance: SECUKINUMAB
     Route: 058
  266. OTEZLA [Suspect]
     Active Substance: APREMILAST
     Route: 065
  267. OTEZLA [Suspect]
     Active Substance: APREMILAST
     Route: 065
  268. CICLOSPORIN [Suspect]
     Active Substance: CYCLOSPORINE
     Indication: RHEUMATOID ARTHRITIS
     Route: 048
  269. AZATHIOPRINE. [Suspect]
     Active Substance: AZATHIOPRINE
     Route: 042
  270. INFLIXIMAB [Suspect]
     Active Substance: INFLIXIMAB
     Route: 042
  271. PLAQUENIL                          /00072602/ [Suspect]
     Active Substance: HYDROXYCHLOROQUINE DIPHOSPHATE
     Indication: RHEUMATOID ARTHRITIS
     Route: 065
  272. APO?AZATHIOPRINE [Suspect]
     Active Substance: AZATHIOPRINE
     Indication: RHEUMATOID ARTHRITIS
     Route: 065
  273. RITUXIMAB. [Suspect]
     Active Substance: RITUXIMAB
     Route: 042
  274. PLAQUENIL                          /00072602/ [Concomitant]
     Active Substance: HYDROXYCHLOROQUINE DIPHOSPHATE
  275. TRAMADOL HYDROCHLORIDE. [Concomitant]
     Active Substance: TRAMADOL HYDROCHLORIDE
  276. COLCHICINE. [Concomitant]
     Active Substance: COLCHICINE
     Route: 065
  277. MOGADON [Concomitant]
     Active Substance: NITRAZEPAM
     Route: 065
  278. OXYCODONE [Concomitant]
     Active Substance: OXYCODONE
     Route: 065
  279. SALBUTAMOL [Concomitant]
     Active Substance: ALBUTEROL
     Indication: ASTHMA
  280. TOFACITINIB CITRATE [Concomitant]
     Active Substance: TOFACITINIB CITRATE
     Route: 065

REACTIONS (109)
  - Deep vein thrombosis [Not Recovered/Not Resolved]
  - Panniculitis [Not Recovered/Not Resolved]
  - Respiratory tract congestion [Not Recovered/Not Resolved]
  - Neoplasm skin [Not Recovered/Not Resolved]
  - Drug eruption [Not Recovered/Not Resolved]
  - Asthenia [Not Recovered/Not Resolved]
  - Rhinorrhoea [Not Recovered/Not Resolved]
  - Product use issue [Unknown]
  - Blood parathyroid hormone decreased [Not Recovered/Not Resolved]
  - Off label use [Not Recovered/Not Resolved]
  - Asthma [Not Recovered/Not Resolved]
  - Mycotic allergy [Not Recovered/Not Resolved]
  - Hypersensitivity [Not Recovered/Not Resolved]
  - Gastrointestinal pain [Not Recovered/Not Resolved]
  - Chills [Not Recovered/Not Resolved]
  - Cataract [Not Recovered/Not Resolved]
  - Condition aggravated [Not Recovered/Not Resolved]
  - Drug tolerance decreased [Not Recovered/Not Resolved]
  - Ulcer [Not Recovered/Not Resolved]
  - Joint swelling [Not Recovered/Not Resolved]
  - Tenosynovitis [Not Recovered/Not Resolved]
  - Tendonitis [Not Recovered/Not Resolved]
  - Dysphonia [Not Recovered/Not Resolved]
  - Speech disorder [Not Recovered/Not Resolved]
  - Laryngeal disorder [Not Recovered/Not Resolved]
  - Contusion [Not Recovered/Not Resolved]
  - Cough [Not Recovered/Not Resolved]
  - Clostridium difficile infection [Not Recovered/Not Resolved]
  - Arthralgia [Not Recovered/Not Resolved]
  - Aspartate aminotransferase increased [Not Recovered/Not Resolved]
  - Rash pruritic [Not Recovered/Not Resolved]
  - Pruritus [Not Recovered/Not Resolved]
  - Pain in extremity [Not Recovered/Not Resolved]
  - Psoriatic arthropathy [Not Recovered/Not Resolved]
  - C-reactive protein abnormal [Not Recovered/Not Resolved]
  - Pleural effusion [Not Recovered/Not Resolved]
  - Productive cough [Not Recovered/Not Resolved]
  - Pain [Not Recovered/Not Resolved]
  - Erythema [Not Recovered/Not Resolved]
  - C-reactive protein increased [Not Recovered/Not Resolved]
  - Headache [Not Recovered/Not Resolved]
  - Infection [Not Recovered/Not Resolved]
  - Influenza [Not Recovered/Not Resolved]
  - Nausea [Not Recovered/Not Resolved]
  - Blood test abnormal [Not Recovered/Not Resolved]
  - Peripheral swelling [Not Recovered/Not Resolved]
  - Arthritis [Not Recovered/Not Resolved]
  - Muscular weakness [Not Recovered/Not Resolved]
  - Heart rate increased [Not Recovered/Not Resolved]
  - Stomatitis [Not Recovered/Not Resolved]
  - Crohn^s disease [Not Recovered/Not Resolved]
  - Drug ineffective [Not Recovered/Not Resolved]
  - Treatment failure [Unknown]
  - Abdominal pain [Not Recovered/Not Resolved]
  - Therapeutic product effect decreased [Not Recovered/Not Resolved]
  - Drug level decreased [Not Recovered/Not Resolved]
  - Feeling abnormal [Not Recovered/Not Resolved]
  - Pericarditis [Not Recovered/Not Resolved]
  - Drug intolerance [Not Recovered/Not Resolved]
  - Inflammation [Not Recovered/Not Resolved]
  - Skin ulcer [Not Recovered/Not Resolved]
  - Sinusitis [Not Recovered/Not Resolved]
  - Musculoskeletal disorder [Not Recovered/Not Resolved]
  - Gastric disorder [Not Recovered/Not Resolved]
  - Sciatica [Not Recovered/Not Resolved]
  - Bone lesion [Not Recovered/Not Resolved]
  - Gastrointestinal disorder [Not Recovered/Not Resolved]
  - Body temperature decreased [Not Recovered/Not Resolved]
  - Lower respiratory tract infection [Not Recovered/Not Resolved]
  - Drug hypersensitivity [Not Recovered/Not Resolved]
  - Alanine aminotransferase increased [Not Recovered/Not Resolved]
  - Rheumatoid nodule [Not Recovered/Not Resolved]
  - Infusion related reaction [Not Recovered/Not Resolved]
  - Weight decreased [Not Recovered/Not Resolved]
  - Lethargy [Not Recovered/Not Resolved]
  - Chest pain [Not Recovered/Not Resolved]
  - Basal cell carcinoma [Not Recovered/Not Resolved]
  - Skin necrosis [Not Recovered/Not Resolved]
  - Hypercalcaemia [Not Recovered/Not Resolved]
  - Blood iron abnormal [Not Recovered/Not Resolved]
  - Limb discomfort [Not Recovered/Not Resolved]
  - Fall [Not Recovered/Not Resolved]
  - Alopecia [Not Recovered/Not Resolved]
  - Rheumatoid arthritis [Not Recovered/Not Resolved]
  - Therapeutic product effect incomplete [Not Recovered/Not Resolved]
  - Hepatic enzyme abnormal [Not Recovered/Not Resolved]
  - Fatigue [Not Recovered/Not Resolved]
  - Blood pressure decreased [Unknown]
  - Ankylosing spondylitis [Not Recovered/Not Resolved]
  - Adverse event [Not Recovered/Not Resolved]
  - Granuloma skin [Not Recovered/Not Resolved]
  - Musculoskeletal stiffness [Not Recovered/Not Resolved]
  - Synovitis [Not Recovered/Not Resolved]
  - Faecal calprotectin increased [Not Recovered/Not Resolved]
  - Adverse reaction [Not Recovered/Not Resolved]
  - Therapeutic response decreased [Not Recovered/Not Resolved]
  - Diarrhoea [Not Recovered/Not Resolved]
  - Morton^s neuralgia [Not Recovered/Not Resolved]
  - Oral discomfort [Not Recovered/Not Resolved]
  - Neuropathy peripheral [Not Recovered/Not Resolved]
  - Loss of personal independence in daily activities [Not Recovered/Not Resolved]
  - Contraindicated product administered [Not Recovered/Not Resolved]
  - Red blood cell sedimentation rate increased [Not Recovered/Not Resolved]
  - Enthesopathy [Not Recovered/Not Resolved]
  - Dermatitis [Not Recovered/Not Resolved]
  - Tongue disorder [Not Recovered/Not Resolved]
  - Rash [Not Recovered/Not Resolved]
  - Disease progression [Not Recovered/Not Resolved]
  - Dyspnoea [Unknown]

NARRATIVE: CASE EVENT DATE: 201105
